FAERS Safety Report 11534670 (Version 1)
Quarter: 2015Q3

REPORT INFORMATION
  Report Type: Other
  Country: JP (occurrence: JP)
  Receive Date: 20150922
  Receipt Date: 20150922
  Transmission Date: 20151125
  Serious: Yes (Hospitalization)
  Sender: FDA-Public Use
  Company Number: JP-ACTELION-A-CH2015-124145

PATIENT
  Age: 40 Year
  Sex: Female

DRUGS (3)
  1. OXYGEN. [Concomitant]
     Active Substance: OXYGEN
  2. TRACLEER [Suspect]
     Active Substance: BOSENTAN
     Indication: PULMONARY ARTERIAL HYPERTENSION
     Route: 048
  3. SILDENAFIL. [Concomitant]
     Active Substance: SILDENAFIL

REACTIONS (15)
  - C-reactive protein increased [Recovering/Resolving]
  - Respiratory failure [Recovering/Resolving]
  - Orthopnoea [Recovering/Resolving]
  - Pyrexia [Recovering/Resolving]
  - Lung transplant [Recovered/Resolved]
  - Drug effect incomplete [Unknown]
  - Dyspnoea [Recovering/Resolving]
  - Obstructive airways disorder [Recovering/Resolving]
  - Hypoxia [Recovering/Resolving]
  - Leukocytosis [Recovering/Resolving]
  - Headache [Recovering/Resolving]
  - Sputum increased [Recovering/Resolving]
  - Pneumonia pseudomonal [Recovering/Resolving]
  - Clubbing [Recovering/Resolving]
  - Oedema peripheral [Recovering/Resolving]
